FAERS Safety Report 17459034 (Version 1)
Quarter: 2020Q1

REPORT INFORMATION
  Report Type: Spontaneous
  Country: US (occurrence: US)
  Receive Date: 20200225
  Receipt Date: 20200225
  Transmission Date: 20200409
  Serious: No
  Sender: FDA-Public Use
  Company Number: US-IGSA-SR10009487

PATIENT
  Age: 77 Year
  Sex: Male
  Weight: 79 kg

DRUGS (12)
  1. TRELEGY ELLIPTA [Concomitant]
     Active Substance: FLUTICASONE FUROATE\UMECLIDINIUM BROMIDE\VILANTEROL TRIFENATATE
  2. PROLASTIN-C LIQUID [Suspect]
     Active Substance: .ALPHA.1-PROTEINASE INHIBITOR HUMAN
     Indication: ALPHA-1 ANTI-TRYPSIN DEFICIENCY
     Dosage: 4740 MG, Q.WK.
     Route: 042
     Dates: start: 20191121
  3. VENTOLIN [Concomitant]
     Active Substance: ALBUTEROL SULFATE
  4. BUMETANIDE. [Concomitant]
     Active Substance: BUMETANIDE
  5. COENZYME Q10 [Concomitant]
     Active Substance: UBIDECARENONE
  6. CARVEDILOL. [Concomitant]
     Active Substance: CARVEDILOL
  7. FUROSEMIDE. [Concomitant]
     Active Substance: FUROSEMIDE
  8. MVI                                /01825701/ [Concomitant]
     Active Substance: VITAMINS
  9. WARFARIN [Concomitant]
     Active Substance: WARFARIN
  10. KETOCONAZOLE. [Concomitant]
     Active Substance: KETOCONAZOLE
  11. ALLOPURINOL. [Concomitant]
     Active Substance: ALLOPURINOL
  12. OXYGEN. [Concomitant]
     Active Substance: OXYGEN
     Dosage: 2 L, UNK

REACTIONS (1)
  - Blood pressure decreased [Recovering/Resolving]

NARRATIVE: CASE EVENT DATE: 20191121
